FAERS Safety Report 13302339 (Version 1)
Quarter: 2017Q1

REPORT INFORMATION
  Report Type: Spontaneous
  Country: BA (occurrence: BA)
  Receive Date: 20170307
  Receipt Date: 20170307
  Transmission Date: 20170428
  Serious: Yes (Hospitalization)
  Sender: FDA-Public Use
  Company Number: BA-GLAXOSMITHKLINE-BA2017GSK028661

PATIENT
  Sex: Female

DRUGS (4)
  1. BACITRACIN + NEOMYCIN [Suspect]
     Active Substance: BACITRACIN\NEOMYCIN
     Indication: SKIN INFECTION
     Dosage: UNK
     Route: 061
     Dates: start: 20170210
  2. ZINNAT [Suspect]
     Active Substance: CEFUROXIME AXETIL
     Indication: SKIN INFECTION
     Dosage: 500 MG, UNK
     Route: 048
     Dates: start: 20170210
  3. SYNOPEN [Suspect]
     Active Substance: CHLOROPYRAMINE HYDROCHLORIDE
     Indication: URTICARIA
     Dosage: UNK
     Route: 030
     Dates: start: 20170210
  4. HYDROCORTISONE. [Suspect]
     Active Substance: HYDROCORTISONE
     Indication: URTICARIA
     Dosage: UNK
     Route: 042
     Dates: start: 20170210

REACTIONS (9)
  - Urticaria [Recovered/Resolved]
  - Skin swelling [Unknown]
  - Pruritus [Recovered/Resolved]
  - Swelling face [Unknown]
  - Dyskinesia [Unknown]
  - Feeling hot [Recovered/Resolved]
  - Choking sensation [Recovered/Resolved]
  - Chills [Unknown]
  - Erythema [Unknown]

NARRATIVE: CASE EVENT DATE: 20170210
